FAERS Safety Report 5083591-X (Version None)
Quarter: 2006Q3

REPORT INFORMATION
  Report Type: 
  Country: None (occurrence: None)
  Receive Date: 20060818
  Receipt Date: 20060713
  Transmission Date: 20061208
  Serious: Yes (Death)
  Sender: FDA-Public Use
  Company Number: B0431145A

PATIENT
  Age: 5 Year
  Sex: Male

DRUGS (2)
  1. ALBENDAZOLE [Suspect]
  2. DIETHYLCARBAMAZINE CITRATE [Suspect]

REACTIONS (2)
  - CHOKING [None]
  - INJURY ASPHYXIATION [None]
